FAERS Safety Report 7281878-3 (Version None)
Quarter: 2011Q1

REPORT INFORMATION
  Report Type: 
  Country: None (occurrence: None)
  Receive Date: 20110208
  Receipt Date: 20110203
  Transmission Date: 20110831
  Serious: Yes (Disabling, Other)
  Sender: FDA-Public Use
  Company Number: US-PFIZER INC-2010160574

PATIENT
  Sex: Male

DRUGS (5)
  1. CHANTIX [Suspect]
     Indication: SMOKING CESSATION THERAPY
     Dosage: UNK
     Dates: start: 20080401
  2. SEROQUEL [Concomitant]
     Indication: SCHIZOPHRENIA
     Dosage: UNK
     Dates: start: 20040101
  3. CHANTIX [Suspect]
     Dosage: UNK
     Dates: start: 20080910, end: 20081112
  4. DEPAKOTE [Concomitant]
     Indication: BIPOLAR DISORDER
  5. DEPAKOTE [Concomitant]
     Indication: DEPRESSION
     Dosage: UNK

REACTIONS (6)
  - MENTAL DISORDER [None]
  - ANXIETY [None]
  - BIPOLAR DISORDER [None]
  - SUICIDE ATTEMPT [None]
  - DEPRESSION [None]
  - INTENTIONAL OVERDOSE [None]
